FAERS Safety Report 6731738-9 (Version None)
Quarter: 2010Q2

REPORT INFORMATION
  Report Type: 
  Country: None (occurrence: None)
  Receive Date: 20100519
  Receipt Date: 20100507
  Transmission Date: 20101027
  Serious: Yes (Other)
  Sender: FDA-Public Use
  Company Number: SG-PFIZER INC-2010057497

PATIENT
  Age: 91 Year
  Sex: Male

DRUGS (1)
  1. FLUCONAZOLE [Suspect]
     Dosage: 100 MG, 1X/DAY
     Route: 048
     Dates: start: 20091109

REACTIONS (1)
  - DERMATITIS BULLOUS [None]
